FAERS Safety Report 8335182-2 (Version None)
Quarter: 2012Q2

REPORT INFORMATION
  Report Type: 
  Country: None (occurrence: None)
  Receive Date: 20120503
  Receipt Date: 20120427
  Transmission Date: 20120825
  Serious: Yes (Hospitalization, Other)
  Sender: FDA-Public Use
  Company Number: BR-ABBOTT-12P-020-0930110-00

PATIENT
  Sex: Female
  Weight: 61 kg

DRUGS (2)
  1. FAMOTIDINE + IBUPROFEN + MELOXICAM + PREDNISOLONE [Concomitant]
     Indication: RHEUMATOID ARTHRITIS
     Dosage: 20MG/400MG/5MG/30MG 1 TABLET DAILY
     Route: 048
  2. HUMIRA [Suspect]
     Indication: RHEUMATOID ARTHRITIS
     Route: 058

REACTIONS (8)
  - BONE PAIN [None]
  - NASOPHARYNGITIS [None]
  - PAIN [None]
  - FATIGUE [None]
  - SCOLIOSIS [None]
  - DYSPNOEA [None]
  - INTERVERTEBRAL DISC PROTRUSION [None]
  - OSTEOARTHRITIS [None]
